FAERS Safety Report 14683756 (Version 7)
Quarter: 2022Q4

REPORT INFORMATION
  Report Type: Spontaneous
  Country: US (occurrence: None)
  Receive Date: 20180327
  Receipt Date: 20221208
  Transmission Date: 20230113
  Serious: Yes (Other)
  Sender: FDA-Public Use
  Company Number: 2018SE34908

PATIENT
  Age: 21622 Day
  Sex: Male
  Weight: 70.3 kg

DRUGS (63)
  1. NEXIUM [Suspect]
     Active Substance: ESOMEPRAZOLE MAGNESIUM
     Indication: Gastrooesophageal reflux disease
     Route: 048
     Dates: start: 2010, end: 2017
  2. NEXIUM [Suspect]
     Active Substance: ESOMEPRAZOLE MAGNESIUM
     Indication: Gastrooesophageal reflux disease
     Dosage: GENERIC
     Route: 065
     Dates: start: 2010, end: 2017
  3. NEXIUM [Suspect]
     Active Substance: ESOMEPRAZOLE MAGNESIUM
     Indication: Gastrooesophageal reflux disease
     Route: 048
     Dates: start: 20130910
  4. NEXIUM [Suspect]
     Active Substance: ESOMEPRAZOLE MAGNESIUM
     Indication: Gastrooesophageal reflux disease
     Dosage: GENERIC
     Route: 065
     Dates: start: 20160629
  5. PRILOSEC [Suspect]
     Active Substance: OMEPRAZOLE MAGNESIUM
     Indication: Gastrooesophageal reflux disease
     Dosage: GENERIC
     Route: 065
     Dates: start: 2017
  6. PRILOSEC [Suspect]
     Active Substance: OMEPRAZOLE MAGNESIUM
     Indication: Gastrooesophageal reflux disease
     Dosage: GENERIC
     Route: 065
  7. PRILOSEC [Suspect]
     Active Substance: OMEPRAZOLE MAGNESIUM
     Indication: Gastrooesophageal reflux disease
     Route: 048
  8. PROTONIX [Suspect]
     Active Substance: PANTOPRAZOLE SODIUM
     Indication: Gastrooesophageal reflux disease
     Route: 065
     Dates: start: 2015
  9. LYRICA [Concomitant]
     Active Substance: PREGABALIN
     Indication: Neuralgia
     Dates: start: 2013, end: 2016
  10. GLIPIZIDE [Concomitant]
     Active Substance: GLIPIZIDE
     Indication: Diabetes mellitus
     Dates: start: 2005, end: 2016
  11. INSULIN NOS [Concomitant]
     Active Substance: INSULIN NOS
     Indication: Diabetes mellitus
     Dates: start: 2015
  12. ATORVASTATIN [Concomitant]
     Active Substance: ATORVASTATIN
     Indication: Blood cholesterol
     Dates: start: 2012, end: 2016
  13. CLOPIDOGREL [Concomitant]
     Active Substance: CLOPIDOGREL BISULFATE
     Indication: Blood cholesterol
  14. CILOSTAZOL [Concomitant]
     Active Substance: CILOSTAZOL
     Indication: Blood cholesterol
  15. TYLENOL [Concomitant]
     Active Substance: ACETAMINOPHEN
     Indication: Blood cholesterol
  16. WELLBUTRIN [Concomitant]
     Active Substance: BUPROPION HYDROCHLORIDE
     Indication: Ex-tobacco user
  17. VALTREX [Concomitant]
     Active Substance: VALACYCLOVIR HYDROCHLORIDE
     Indication: Blood cholesterol
  18. METFORMIN [Concomitant]
     Active Substance: METFORMIN HYDROCHLORIDE
     Indication: Blood cholesterol
  19. DICYCLOMINE [Concomitant]
     Active Substance: DICYCLOMINE HYDROCHLORIDE
  20. HUMALOG [Concomitant]
     Active Substance: INSULIN LISPRO
  21. BACLOFEN [Concomitant]
     Active Substance: BACLOFEN
  22. ASPIRIN [Concomitant]
     Active Substance: ASPIRIN
  23. TRICOR [Concomitant]
     Active Substance: FENOFIBRATE
  24. GABAPENTIN [Concomitant]
     Active Substance: GABAPENTIN
     Dates: start: 20160629
  25. MELOXICAM [Concomitant]
     Active Substance: MELOXICAM
  26. AMLODIPINE BESYLATE\OLMESARTAN MEDOXOMIL [Concomitant]
     Active Substance: AMLODIPINE BESYLATE\OLMESARTAN MEDOXOMIL
  27. FLEXERIL [Concomitant]
     Active Substance: CYCLOBENZAPRINE HYDROCHLORIDE
  28. ADVIL [Concomitant]
     Active Substance: IBUPROFEN
  29. LANTUS SOLOSTAR [Concomitant]
     Active Substance: INSULIN GLARGINE
  30. DESYREL [Concomitant]
     Active Substance: TRAZODONE HYDROCHLORIDE
  31. PERCOCET [Concomitant]
     Active Substance: ACETAMINOPHEN\OXYCODONE HYDROCHLORIDE
     Dates: start: 20160620
  32. CLEOCIN [Concomitant]
     Active Substance: CLINDAMYCIN PHOSPHATE
  33. NORCO [Concomitant]
     Active Substance: ACETAMINOPHEN\HYDROCODONE BITARTRATE
  34. FENTANYL [Concomitant]
     Active Substance: FENTANYL
  35. MIDAZOLAM [Concomitant]
     Active Substance: MIDAZOLAM
  36. AMLODIPINE BESYLATE [Concomitant]
     Active Substance: AMLODIPINE BESYLATE
  37. FERROUS SULFATE [Concomitant]
     Active Substance: FERROUS SULFATE
  38. SILDENAFIL CITRATE [Concomitant]
     Active Substance: SILDENAFIL CITRATE
  39. DICLOFENAC SODIUM [Concomitant]
     Active Substance: DICLOFENAC SODIUM
  40. CARBAMIDE PEROXIDE [Concomitant]
     Active Substance: CARBAMIDE PEROXIDE
  41. VARENICLINE TARTRATE [Concomitant]
     Active Substance: VARENICLINE TARTRATE
  42. OFLOXACIN [Concomitant]
     Active Substance: OFLOXACIN
  43. PREDNISOLONE ACETATE [Concomitant]
     Active Substance: PREDNISOLONE ACETATE
  44. IRBESARTAN [Concomitant]
     Active Substance: IRBESARTAN
  45. FLUVIRIN NOS [Concomitant]
     Active Substance: INFLUENZA VIRUS VACCINE
  46. OXYCODONE [Concomitant]
     Active Substance: OXYCODONE
  47. VITAMIN D [Concomitant]
     Active Substance: VITAMIN D NOS
  48. VITAMINS [Concomitant]
     Active Substance: VITAMINS
  49. TRULICITY [Concomitant]
     Active Substance: DULAGLUTIDE
  50. PROCHLORPERAZINE [Concomitant]
     Active Substance: PROCHLORPERAZINE
  51. IOPAMIDOL [Concomitant]
     Active Substance: IOPAMIDOL
  52. FAMOTIDINE [Concomitant]
     Active Substance: FAMOTIDINE
  53. SPIRONOLACTONE [Concomitant]
     Active Substance: SPIRONOLACTONE
  54. TRAMADOL [Concomitant]
     Active Substance: TRAMADOL
  55. ONDANSETRON [Concomitant]
     Active Substance: ONDANSETRON
  56. ACETAMINOPHEN\HYDROCODONE BITARTRATE [Concomitant]
     Active Substance: ACETAMINOPHEN\HYDROCODONE BITARTRATE
  57. CLINDAMYCIN [Concomitant]
     Active Substance: CLINDAMYCIN
  58. KETOROLAC [Concomitant]
     Active Substance: KETOROLAC TROMETHAMINE
  59. FIBER- CAPS [Concomitant]
  60. METOPROLOL SUCCINATE [Concomitant]
     Active Substance: METOPROLOL SUCCINATE
  61. SHINGRIX [Concomitant]
     Active Substance: RECOMBINANT VARICELLA ZOSTER VIRUS (VZV) GLYCOPROTEIN E
  62. AZOR [Concomitant]
     Active Substance: AMLODIPINE BESYLATE\OLMESARTAN MEDOXOMIL
     Indication: Blood pressure abnormal
     Dates: start: 2012, end: 2016
  63. TUMS [Concomitant]
     Active Substance: CALCIUM CARBONATE

REACTIONS (7)
  - Acute kidney injury [Not Recovered/Not Resolved]
  - Chronic kidney disease [Not Recovered/Not Resolved]
  - Renal failure [Unknown]
  - Nephrogenic anaemia [Unknown]
  - Chronic kidney disease-mineral and bone disorder [Unknown]
  - Back pain [Not Recovered/Not Resolved]
  - Gait disturbance [Not Recovered/Not Resolved]

NARRATIVE: CASE EVENT DATE: 20180514
